FAERS Safety Report 14413700 (Version 2)
Quarter: 2018Q2

REPORT INFORMATION
  Report Type: Report from Study
  Country: US (occurrence: US)
  Receive Date: 20180119
  Receipt Date: 20180517
  Transmission Date: 20180711
  Serious: No
  Sender: FDA-Public Use
  Company Number: PHEH2018US002095

PATIENT
  Sex: Male

DRUGS (1)
  1. OMNITROPE [Suspect]
     Active Substance: SOMATROPIN
     Indication: GROWTH HORMONE DEFICIENCY
     Dosage: UNK, QD
     Route: 058
     Dates: start: 20130923, end: 20180116

REACTIONS (2)
  - Incorrect dose administered by device [Recovered/Resolved]
  - Device issue [Recovered/Resolved]
